FAERS Safety Report 12242011 (Version 1)
Quarter: 2016Q2

REPORT INFORMATION
  Report Type: Spontaneous
  Country: US (occurrence: None)
  Receive Date: 20160405
  Receipt Date: 20160405
  Transmission Date: 20160815
  Serious: Yes (Other)
  Sender: FDA-Public Use
  Company Number: None

PATIENT
  Age: 46 Year
  Sex: Female
  Weight: 70.31 kg

DRUGS (3)
  1. IRON [Concomitant]
     Active Substance: IRON
  2. METOPROLOL TARTRATE. [Concomitant]
     Active Substance: METOPROLOL TARTRATE
  3. ROPINIROLE ER TAB 4MG, 4 MG [Suspect]
     Active Substance: ROPINIROLE
     Indication: RESTLESS LEGS SYNDROME
     Route: 048
     Dates: start: 20160104, end: 20160104

REACTIONS (6)
  - Nausea [None]
  - Activities of daily living impaired [None]
  - Drug ineffective [None]
  - Sleep disorder due to general medical condition, insomnia type [None]
  - Reaction to drug excipients [None]
  - Product substitution issue [None]

NARRATIVE: CASE EVENT DATE: 20160104
